FAERS Safety Report 21117257 (Version 1)
Quarter: 2022Q3

REPORT INFORMATION
  Report Type: Spontaneous
  Country: AU (occurrence: AU)
  Receive Date: 20220722
  Receipt Date: 20220722
  Transmission Date: 20221027
  Serious: Yes (Other)
  Sender: FDA-Public Use
  Company Number: AU-SUN PHARMACEUTICAL INDUSTRIES LTD-2022RR-345286

PATIENT
  Age: 17 Year
  Sex: Male

DRUGS (4)
  1. RISPERIDONE [Suspect]
     Active Substance: RISPERIDONE
     Indication: Autism spectrum disorder
     Dosage: 0.5 MILLIGRAM, BID
     Route: 065
  2. FLUOXETINE [Interacting]
     Active Substance: FLUOXETINE HYDROCHLORIDE
     Indication: Autism spectrum disorder
     Dosage: 20 MILLIGRAM
     Route: 065
  3. LORATADINE [Suspect]
     Active Substance: LORATADINE
     Indication: Autism spectrum disorder
     Dosage: 10 MILLIGRAM, DAILY
     Route: 065
  4. CLONIDINE [Suspect]
     Active Substance: CLONIDINE
     Indication: Autism spectrum disorder
     Dosage: 0.1 MILLIGRAM
     Route: 065

REACTIONS (4)
  - Anxiety [Unknown]
  - Behaviour disorder [Unknown]
  - Therapeutic product effect incomplete [Unknown]
  - Drug interaction [Unknown]
